FAERS Safety Report 9813536 (Version 1)
Quarter: 2014Q1

REPORT INFORMATION
  Report Type: Spontaneous
  Country: US (occurrence: US)
  Receive Date: 20140113
  Receipt Date: 20140113
  Transmission Date: 20141002
  Serious: Yes (Death)
  Sender: FDA-Public Use
  Company Number: US-PFIZER INC-2014006018

PATIENT
  Age: 35 Year
  Sex: Female

DRUGS (7)
  1. HYDROXYZINE PAMOATE [Suspect]
     Dosage: UNK
  2. IBUPROFEN [Suspect]
     Dosage: UNK
  3. TRAZODONE [Suspect]
     Dosage: UNK
  4. CITALOPRAM [Suspect]
     Dosage: UNK
  5. CLONAZEPAM [Suspect]
     Dosage: UNK
  6. FLUOXETINE [Suspect]
     Dosage: UNK
  7. VALACICLOVIR [Suspect]
     Dosage: UNK

REACTIONS (1)
  - Completed suicide [Fatal]
